FAERS Safety Report 24072981 (Version 1)
Quarter: 2024Q3

REPORT INFORMATION
  Report Type: Spontaneous
  Country: CN (occurrence: CN)
  Receive Date: 20240710
  Receipt Date: 20240710
  Transmission Date: 20241017
  Serious: Yes (Hospitalization)
  Sender: ROCHE
  Company Number: CN-002147023-NVSC2024CN139690

PATIENT
  Age: 34 Year
  Sex: Male

DRUGS (1)
  1. LUCENTIS [Suspect]
     Active Substance: RANIBIZUMAB
     Indication: Macular oedema
     Dosage: 0.1 ML, QD (LOCAL INJECTION)
     Route: 065
     Dates: start: 20240618, end: 20240618

REACTIONS (3)
  - Pruritus [Recovering/Resolving]
  - Rash [Recovering/Resolving]
  - Papule [Recovering/Resolving]

NARRATIVE: CASE EVENT DATE: 20240618
